FAERS Safety Report 9013439 (Version 1)
Quarter: 2013Q1

REPORT INFORMATION
  Report Type: Spontaneous
  Country: US (occurrence: US)
  Receive Date: 20130114
  Receipt Date: 20130114
  Transmission Date: 20140127
  Serious: No
  Sender: FDA-Public Use
  Company Number: US-009507513-1301USA005596

PATIENT
  Sex: Female
  Weight: 152.5 kg

DRUGS (3)
  1. PEG-INTRON [Suspect]
     Indication: HEPATITIS C
     Dosage: UNK
     Route: 058
     Dates: start: 20120201, end: 20130105
  2. REBETOL [Suspect]
     Indication: HEPATITIS C
     Dosage: UNK
     Route: 048
     Dates: start: 20120201, end: 20130105
  3. TELAPREVIR [Concomitant]
     Dosage: UNK
     Dates: start: 20120201, end: 20120501

REACTIONS (1)
  - Dysgeusia [Unknown]
